FAERS Safety Report 7885625-3 (Version None)
Quarter: 2011Q4

REPORT INFORMATION
  Report Type: 
  Country: None (occurrence: None)
  Receive Date: 20111102
  Receipt Date: 20110627
  Transmission Date: 20120403
  Serious: Yes (Hospitalization, Other)
  Sender: FDA-Public Use
  Company Number: US-AMGEN-USASP2011032697

PATIENT
  Age: 48 Year
  Sex: Female

DRUGS (4)
  1. ENBREL [Suspect]
     Indication: FIBROMYALGIA
  2. METHOTREXATE [Concomitant]
     Dosage: 1 MG, QWK
     Dates: start: 19960101
  3. ENBREL [Suspect]
  4. ENBREL [Suspect]
     Indication: PSORIASIS
     Dosage: 50 MG, QWK
     Dates: start: 20080301, end: 20110619

REACTIONS (8)
  - UPPER RESPIRATORY TRACT INFECTION [None]
  - CONVULSION [None]
  - DRUG HYPERSENSITIVITY [None]
  - SINUSITIS [None]
  - NASOPHARYNGITIS [None]
  - INFLUENZA [None]
  - SINUS CONGESTION [None]
  - H1N1 INFLUENZA [None]
